FAERS Safety Report 13969068 (Version 1)
Quarter: 2017Q3

REPORT INFORMATION
  Report Type: Spontaneous
  Country: US (occurrence: US)
  Receive Date: 20170914
  Receipt Date: 20170914
  Transmission Date: 20171128
  Serious: No
  Sender: FDA-Public Use
  Company Number: US-PERRIGO-17US024122

PATIENT
  Age: 3 Year
  Sex: Male
  Weight: 13.61 kg

DRUGS (1)
  1. CLOBETASOL PROPIONATE. [Suspect]
     Active Substance: CLOBETASOL PROPIONATE
     Indication: ECZEMA
     Dosage: ONE APPLICATION, QD FOR 7 DAYS
     Route: 061
     Dates: start: 201704

REACTIONS (2)
  - Drug administered to patient of inappropriate age [Unknown]
  - Drug administration error [Unknown]

NARRATIVE: CASE EVENT DATE: 201704
